FAERS Safety Report 9074663 (Version 1)
Quarter: 2013Q1

REPORT INFORMATION
  Report Type: Report from Study
  Country: US (occurrence: US)
  Receive Date: 20130128
  Receipt Date: 20130128
  Transmission Date: 20140127
  Serious: No
  Sender: FDA-Public Use
  Company Number: US-ABBOTT-12P-163-0901005-00

PATIENT
  Age: 33 None
  Sex: Female

DRUGS (1)
  1. HUMIRA 40 MG/ 0.8 ML PRE-FILLED SYRINGE [Suspect]
     Indication: CROHN^S DISEASE
     Route: 058
     Dates: start: 201001

REACTIONS (5)
  - Headache [Unknown]
  - Sinus congestion [Unknown]
  - Sneezing [Unknown]
  - Rash macular [Unknown]
  - Injection site bruising [Recovering/Resolving]
